FAERS Safety Report 16809500 (Version 1)
Quarter: 2019Q4

REPORT INFORMATION
  Report Type: Spontaneous
  Country: US (occurrence: US)
  Receive Date: 20190915
  Receipt Date: 20190915
  Transmission Date: 20200122
  Serious: Yes (Life-Threatening, Disabling)
  Sender: FDA-Public Use
  Company Number: None

PATIENT
  Age: 77 Year
  Sex: Female
  Weight: 83.7 kg

DRUGS (14)
  1. ZANTAC 150 MAXIMUM STRENGTH [Suspect]
     Active Substance: RANITIDINE HYDROCHLORIDE
     Indication: GASTROOESOPHAGEAL REFLUX DISEASE
     Dosage: ?          QUANTITY:1 TABLET(S);?
     Route: 048
     Dates: start: 20190501, end: 20190513
  2. MAGNESIUM [Concomitant]
     Active Substance: MAGNESIUM
  3. RANITIDINE 150 MG TAB [Suspect]
     Active Substance: RANITIDINE
     Indication: GASTROOESOPHAGEAL REFLUX DISEASE
     Dosage: ?          QUANTITY:1 TABLET(S);?
     Route: 048
     Dates: start: 20190513, end: 20190614
  4. E [Concomitant]
  5. METHYLFOLATE [Concomitant]
     Active Substance: LEVOMEFOLATE CALCIUM
  6. PROPRANOLOL [Concomitant]
     Active Substance: PROPRANOLOL HYDROCHLORIDE
  7. VITAMIN B12 [Concomitant]
     Active Substance: CYANOCOBALAMIN
  8. FISH OIL [Concomitant]
     Active Substance: FISH OIL
  9. LUTEIN [Concomitant]
     Active Substance: LUTEIN
  10. LEVOXYL [Concomitant]
     Active Substance: LEVOTHYROXINE SODIUM
  11. B-VITAMINS [Concomitant]
  12. VITAMIN D3 [Concomitant]
     Active Substance: CHOLECALCIFEROL
  13. VIT A [Concomitant]
  14. ACIDOLOPHIS [Concomitant]

REACTIONS (3)
  - Product substitution [None]
  - Laboratory test abnormal [None]
  - Neoplasm malignant [None]

NARRATIVE: CASE EVENT DATE: 20190513
